FAERS Safety Report 7090226-3 (Version None)
Quarter: 2010Q4

REPORT INFORMATION
  Report Type: 
  Country: None (occurrence: None)
  Receive Date: 20101109
  Receipt Date: 20101028
  Transmission Date: 20110411
  Serious: Yes (Hospitalization)
  Sender: FDA-Public Use
  Company Number: IT-JNJFOC-20101006673

PATIENT
  Sex: Female

DRUGS (1)
  1. STELARA [Suspect]
     Indication: PARAPSORIASIS
     Route: 058

REACTIONS (1)
  - SKIN PAPILLOMA [None]
